FAERS Safety Report 16353614 (Version 1)
Quarter: 2019Q2

REPORT INFORMATION
  Report Type: Spontaneous
  Country: BR (occurrence: BR)
  Receive Date: 20190524
  Receipt Date: 20190524
  Transmission Date: 20190711
  Serious: Yes (Hospitalization)
  Sender: FDA-Public Use
  Company Number: BR-SERVIER-S19005331

PATIENT

DRUGS (1)
  1. ONCASPAR [Suspect]
     Active Substance: PEGASPARGASE
     Indication: PRODUCT USED FOR UNKNOWN INDICATION
     Dosage: 2500 IU/M2, UNK
     Route: 030

REACTIONS (2)
  - Seizure [Recovered/Resolved]
  - Superior sagittal sinus thrombosis [Recovered/Resolved]

NARRATIVE: CASE EVENT DATE: 2019
